FAERS Safety Report 17279823 (Version 1)
Quarter: 2020Q1

REPORT INFORMATION
  Report Type: Spontaneous
  Country: US (occurrence: US)
  Receive Date: 20200116
  Receipt Date: 20200116
  Transmission Date: 20200409
  Serious: No
  Sender: FDA-Public Use
  Company Number: US-TAKEDA-2020TUS002654

PATIENT
  Age: 53 Year
  Sex: Male
  Weight: 72.56 kg

DRUGS (2)
  1. TRINTELLIX [Suspect]
     Active Substance: VORTIOXETINE HYDROBROMIDE
     Indication: ANXIETY
  2. TRINTELLIX [Suspect]
     Active Substance: VORTIOXETINE HYDROBROMIDE
     Indication: DEPRESSION
     Dosage: 10 MILLIGRAM
     Route: 065

REACTIONS (4)
  - Faeces discoloured [Not Recovered/Not Resolved]
  - Headache [Not Recovered/Not Resolved]
  - Condition aggravated [Not Recovered/Not Resolved]
  - Libido decreased [Not Recovered/Not Resolved]
